FAERS Safety Report 12425743 (Version 1)
Quarter: 2016Q2

REPORT INFORMATION
  Report Type: Spontaneous
  Country: US (occurrence: US)
  Receive Date: 20160601
  Receipt Date: 20160601
  Transmission Date: 20160815
  Serious: Yes (Disabling, Other)
  Sender: FDA-Public Use
  Company Number: US-009507513-1605USA014559

PATIENT
  Sex: Female

DRUGS (1)
  1. NUVARING [Suspect]
     Active Substance: ETHINYL ESTRADIOL\ETONOGESTREL
     Indication: CONTRACEPTION
     Dosage: 3 WEEKS IN/1 WEEK RING FREE
     Route: 067

REACTIONS (7)
  - Embolism [Unknown]
  - Cerebrovascular accident [Unknown]
  - Vertebral artery dissection [Unknown]
  - Deep vein thrombosis [Unknown]
  - Thrombosis [Unknown]
  - Coagulopathy [Unknown]
  - Disability [Unknown]
